FAERS Safety Report 4690897-2 (Version None)
Quarter: 2005Q2

REPORT INFORMATION
  Report Type: 
  Country: None (occurrence: None)
  Receive Date: 20050614
  Receipt Date: 20050614
  Transmission Date: 20051028
  Serious: Yes (Life-Threatening)
  Sender: FDA-Public Use
  Company Number: None

PATIENT
  Age: 36 Year
  Sex: Female

DRUGS (1)
  1. LIDOCAINE [Suspect]
     Indication: LOCAL ANAESTHESIA
     Dates: start: 20050415

REACTIONS (4)
  - ANAPHYLACTIC REACTION [None]
  - CHEST PAIN [None]
  - DYSPNOEA [None]
  - PHARYNGEAL OEDEMA [None]
